FAERS Safety Report 18904269 (Version 1)
Quarter: 2021Q1

REPORT INFORMATION
  Report Type: Spontaneous
  Country: US (occurrence: US)
  Receive Date: 20210217
  Receipt Date: 20210217
  Transmission Date: 20210420
  Serious: Yes (Other)
  Sender: FDA-Public Use
  Company Number: US-PFIZER INC-2021153481

PATIENT
  Age: 62 Year
  Sex: Male

DRUGS (1)
  1. CEFTAZIDIME. [Suspect]
     Active Substance: CEFTAZIDIME
     Indication: BURKHOLDERIA CEPACIA COMPLEX INFECTION
     Dosage: UNK

REACTIONS (6)
  - Drug ineffective [Unknown]
  - Septic embolus [Unknown]
  - Aphasia [Unknown]
  - Arthritis bacterial [Unknown]
  - Cognitive linguistic deficit [Not Recovered/Not Resolved]
  - Cerebral artery embolism [Unknown]
